FAERS Safety Report 10176660 (Version 3)
Quarter: 2014Q2

REPORT INFORMATION
  Report Type: Spontaneous
  Country: US (occurrence: US)
  Receive Date: 20140516
  Receipt Date: 20140528
  Transmission Date: 20141212
  Serious: Yes (Hospitalization, Other)
  Sender: FDA-Public Use
  Company Number: US-BAXTER-2014BAX024053

PATIENT
  Sex: Female

DRUGS (2)
  1. DIANEAL LOW CALCIUM [Suspect]
     Indication: PERITONEAL DIALYSIS
     Route: 033
     Dates: start: 2004
  2. DIANEAL LOW CALCIUM [Suspect]
     Route: 033
     Dates: start: 2004

REACTIONS (2)
  - Bacteraemia [Unknown]
  - Peritonitis bacterial [Recovering/Resolving]
